FAERS Safety Report 8344632-7 (Version None)
Quarter: 2012Q2

REPORT INFORMATION
  Report Type: 
  Country: None (occurrence: None)
  Receive Date: 20120508
  Receipt Date: 20120501
  Transmission Date: 20120825
  Serious: Yes (Hospitalization, Other)
  Sender: FDA-Public Use
  Company Number: US-BAYER-2011-084500

PATIENT
  Age: 21 Year
  Sex: Female
  Weight: 56.689 kg

DRUGS (7)
  1. HYDROCODONE BITARTRATE [Concomitant]
     Dosage: 5-325 MG 1-2 TABLETS EVERY 4 HOURS AS NEEDED FOR
     Route: 048
     Dates: start: 20100719
  2. CIPROFLOXACIN [Concomitant]
     Dosage: 500 MG, BID FOR 7 DAYS
     Route: 048
     Dates: start: 20100719
  3. CELEXA [Concomitant]
     Dosage: UNK
     Dates: start: 20100819
  4. YAZ [Suspect]
     Indication: CONTRACEPTION
     Dosage: UNK
     Dates: start: 20081201, end: 20090429
  5. PROMETHAZINE [Concomitant]
     Indication: NAUSEA
     Dosage: 25 MG, 1 TABLET EVERY 4 HOURS AS NEEDED
     Route: 048
     Dates: start: 20100719
  6. PROMETHAZINE [Concomitant]
     Indication: VOMITING
  7. XANAX [Concomitant]
     Dosage: UNK
     Dates: start: 20100819

REACTIONS (3)
  - PAIN [None]
  - CHOLELITHIASIS [None]
  - CHOLECYSTITIS CHRONIC [None]
